FAERS Safety Report 15430533 (Version 1)
Quarter: 2018Q3

REPORT INFORMATION
  Report Type: Spontaneous
  Country: AT (occurrence: AT)
  Receive Date: 20180926
  Receipt Date: 20180926
  Transmission Date: 20181010
  Serious: Yes (Other)
  Sender: FDA-Public Use
  Company Number: AT-ALLERGAN-1846186US

PATIENT
  Age: 48 Year
  Sex: Male
  Weight: 119 kg

DRUGS (3)
  1. QUETIAPIN [Suspect]
     Active Substance: QUETIAPINE
     Indication: PRODUCT USED FOR UNKNOWN INDICATION
     Dosage: 2 DF, UNK
     Route: 048
     Dates: start: 20140716
  2. STRIBILD [Suspect]
     Active Substance: COBICISTAT\ELVITEGRAVIR\EMTRICITABINE\TENOFOVIR DISOPROXIL FUMARATE
     Indication: HIV CARRIER
     Dosage: 1 DF, QD
     Route: 065
     Dates: start: 2015
  3. MILNACIPRAN ? BP [Suspect]
     Active Substance: MILNACIPRAN
     Indication: DEPRESSION
     Dosage: 1 DF, QD
     Route: 065
     Dates: start: 20131209

REACTIONS (2)
  - Generalised tonic-clonic seizure [Not Recovered/Not Resolved]
  - Product use issue [Unknown]

NARRATIVE: CASE EVENT DATE: 201712
